FAERS Safety Report 11031071 (Version 1)
Quarter: 2015Q2

REPORT INFORMATION
  Report Type: Spontaneous
  Country: US (occurrence: US)
  Receive Date: 20150415
  Receipt Date: 20150415
  Transmission Date: 20150821
  Serious: No
  Sender: FDA-Public Use
  Company Number: US-ASTRAZENECA-2015SE08389

PATIENT
  Age: 74 Year
  Sex: Female

DRUGS (1)
  1. PRILOSEC [Suspect]
     Active Substance: OMEPRAZOLE MAGNESIUM
     Route: 048
     Dates: start: 20150109, end: 20150111

REACTIONS (3)
  - Dyspepsia [Recovered/Resolved]
  - Salivary hypersecretion [Recovered/Resolved]
  - Throat irritation [Recovered/Resolved]
